FAERS Safety Report 9182113 (Version 2)
Quarter: 2013Q2

REPORT INFORMATION
  Report Type: Spontaneous
  Country: US (occurrence: US)
  Receive Date: 20130322
  Receipt Date: 20130404
  Transmission Date: 20140414
  Serious: Yes (Other)
  Sender: FDA-Public Use
  Company Number: US-PFIZER INC-2013094499

PATIENT
  Age: 75 Year
  Sex: Female
  Weight: 48.98 kg

DRUGS (3)
  1. LYRICA [Suspect]
     Indication: SPINAL DISORDER
     Dosage: 100 MG, 1X/DAY
     Route: 048
     Dates: start: 200910
  2. LYRICA [Suspect]
     Indication: PAIN IN EXTREMITY
  3. MACROBID [Concomitant]
     Indication: INFECTION PROPHYLAXIS
     Dosage: 25 MG, 1X/DAY
     Route: 048

REACTIONS (2)
  - Faecal incontinence [Not Recovered/Not Resolved]
  - Anal sphincter atony [Not Recovered/Not Resolved]
